FAERS Safety Report 7104644-8 (Version None)
Quarter: 2010Q4

REPORT INFORMATION
  Report Type: 
  Country: None (occurrence: None)
  Receive Date: 20101109
  Receipt Date: 20101025
  Transmission Date: 20110411
  Serious: Yes (Hospitalization)
  Sender: FDA-Public Use
  Company Number: 1000017096

PATIENT
  Sex: Female

DRUGS (1)
  1. MEMANTINE [Suspect]
     Indication: DEMENTIA ALZHEIMER'S TYPE
     Dosage: 20 MG (10 MG, 2 IN 1 D),ORAL, 200 MG (100 MG, 2 IN 1 D), ORAL
     Route: 048

REACTIONS (3)
  - ACCIDENTAL OVERDOSE [None]
  - SOMNOLENCE [None]
  - WRONG TECHNIQUE IN DRUG USAGE PROCESS [None]
